FAERS Safety Report 5239732-4 (Version None)
Quarter: 2007Q1

REPORT INFORMATION
  Report Type: 
  Country: None (occurrence: None)
  Receive Date: 20070216
  Receipt Date: 20070208
  Transmission Date: 20070707
  Serious: Yes (Hospitalization)
  Sender: FDA-Public Use
  Company Number: CA-JNJFOC-20070202803

PATIENT
  Sex: Female
  Weight: 74.84 kg

DRUGS (9)
  1. DURAGESIC-100 [Suspect]
     Route: 062
  2. DURAGESIC-100 [Suspect]
     Indication: PAIN
     Route: 062
  3. COUMADIN [Concomitant]
     Route: 065
  4. ATASOL [Concomitant]
     Route: 065
  5. ACCUPRIL [Concomitant]
     Route: 065
  6. NORVASC [Concomitant]
     Route: 065
  7. LOZIDE [Concomitant]
     Route: 065
  8. ASPIRIN [Concomitant]
     Route: 065
  9. NEURONTIN [Concomitant]
     Indication: PAIN
     Route: 065

REACTIONS (3)
  - EMBOLISM [None]
  - PHARMACEUTICAL PRODUCT COMPLAINT [None]
  - SOMNOLENCE [None]
